FAERS Safety Report 7618152-9 (Version None)
Quarter: 2011Q3

REPORT INFORMATION
  Report Type: 
  Country: None (occurrence: None)
  Receive Date: 20110718
  Receipt Date: 20110624
  Transmission Date: 20111222
  Serious: Yes (Hospitalization)
  Sender: FDA-Public Use
  Company Number: US-GLAXOSMITHKLINE-A0806822A

PATIENT
  Age: 60 Year
  Sex: Male
  Weight: 95.5 kg

DRUGS (9)
  1. METOPROLOL TARTRATE [Concomitant]
  2. VALSARTAN [Concomitant]
  3. AVANDIA [Suspect]
     Indication: TYPE 2 DIABETES MELLITUS
     Dosage: 4MG PER DAY
     Route: 048
     Dates: start: 20050201, end: 20070701
  4. OMEPRAZOLE [Concomitant]
  5. PENTOXIFYLLINE [Concomitant]
  6. TRAZODONE [Concomitant]
  7. WARFARIN SODIUM [Concomitant]
  8. LOVASTATIN [Concomitant]
  9. SERTRALINE HYDROCHLORIDE [Concomitant]

REACTIONS (4)
  - MYOCARDIAL INFARCTION [None]
  - CORONARY ARTERY DISEASE [None]
  - PULMONARY EMBOLISM [None]
  - MACULAR OEDEMA [None]
